FAERS Safety Report 7259361-0 (Version None)
Quarter: 2011Q1

REPORT INFORMATION
  Report Type: 
  Country: None (occurrence: None)
  Receive Date: 20110129
  Receipt Date: 20100824
  Transmission Date: 20110831
  Serious: No
  Sender: FDA-Public Use
  Company Number: US-ABBOTT-10P-163-0665985-00

PATIENT
  Age: 52 Year
  Sex: Female

DRUGS (8)
  1. MUCINEX [Concomitant]
     Indication: HYPERSENSITIVITY
  2. METHOTREXATE [Concomitant]
     Indication: PRODUCT USED FOR UNKNOWN INDICATION
     Dosage: 6 TABLETS/WEEKLY
  3. CLARITIN [Concomitant]
     Indication: HYPERSENSITIVITY
  4. DARVOCET-N 100 [Concomitant]
     Indication: PAIN
     Dosage: TYPICALLY 2-3 PILLS DAILY
  5. CATAPRES [Concomitant]
     Indication: HOT FLUSH
  6. MULTIPLE VITAMINS AND SUPPLEMENTS [Concomitant]
     Indication: PRODUCT USED FOR UNKNOWN INDICATION
     Dosage: DAILY
  7. HUMIRA [Suspect]
     Indication: RHEUMATOID ARTHRITIS
     Dates: start: 20100601
  8. NOVASTATIN [Concomitant]
     Indication: BLOOD CHOLESTEROL INCREASED

REACTIONS (1)
  - INJECTION SITE PAIN [None]
